FAERS Safety Report 12832769 (Version 4)
Quarter: 2016Q4

REPORT INFORMATION
  Report Type: Spontaneous
  Country: US (occurrence: US)
  Receive Date: 20161010
  Receipt Date: 20161124
  Transmission Date: 20170207
  Serious: Yes (Other)
  Sender: FDA-Public Use
  Company Number: US-JNJFOC-20161006550

PATIENT
  Age: 37 Year
  Sex: Female

DRUGS (1)
  1. LEVAQUIN [Suspect]
     Active Substance: LEVOFLOXACIN
     Indication: STREPTOCOCCAL INFECTION
     Route: 048
     Dates: start: 200603

REACTIONS (9)
  - Polyneuropathy [Unknown]
  - Visual impairment [Unknown]
  - Skin disorder [Unknown]
  - Tenosynovitis [Unknown]
  - Hypoacusis [Unknown]
  - Musculoskeletal disorder [Unknown]
  - Tendonitis [Unknown]
  - Mental disorder [Unknown]
  - Cardiovascular disorder [Unknown]

NARRATIVE: CASE EVENT DATE: 200603
